FAERS Safety Report 20027409 (Version 1)
Quarter: 2021Q4

REPORT INFORMATION
  Report Type: Spontaneous
  Country: US (occurrence: US)
  Receive Date: 20211103
  Receipt Date: 20211103
  Transmission Date: 20220303
  Serious: No
  Sender: FDA-Public Use
  Company Number: US-GLENMARK PHARMACEUTICALS-2021GMK053426

PATIENT
  Sex: Female

DRUGS (1)
  1. APREPITANT [Suspect]
     Active Substance: APREPITANT
     Indication: Product used for unknown indication
     Dosage: UNK, QD (TAKES THE PRODUCT EVERY DAY)
     Route: 065

REACTIONS (2)
  - Illness [Unknown]
  - Product dose omission issue [Unknown]
